FAERS Safety Report 8033368-8 (Version None)
Quarter: 2012Q1

REPORT INFORMATION
  Report Type: 
  Country: None (occurrence: None)
  Receive Date: 20120110
  Receipt Date: 20111229
  Transmission Date: 20120608
  Serious: Yes (Hospitalization)
  Sender: FDA-Public Use
  Company Number: BE-WATSON-2011-22702

PATIENT
  Age: 38 Year
  Sex: Female

DRUGS (1)
  1. PROGESTERONE IN OIL INJ [Suspect]
     Indication: IN VITRO FERTILISATION
     Dosage: 100 MG, DAILY
     Route: 030

REACTIONS (11)
  - LUNG INFILTRATION [None]
  - WHITE BLOOD CELL COUNT INCREASED [None]
  - DYSPNOEA [None]
  - EOSINOPHIL COUNT INCREASED [None]
  - PYREXIA [None]
  - HYPOXIA [None]
  - RALES [None]
  - INJECTION SITE REACTION [None]
  - C-REACTIVE PROTEIN INCREASED [None]
  - EOSINOPHILIC PNEUMONIA [None]
  - COUGH [None]
